FAERS Safety Report 6816098-7 (Version None)
Quarter: 2010Q3

REPORT INFORMATION
  Report Type: 
  Country: None (occurrence: None)
  Receive Date: 20100705
  Receipt Date: 20100621
  Transmission Date: 20110219
  Serious: Yes (Hospitalization, Other)
  Sender: FDA-Public Use
  Company Number: RU-RANBAXY-2010R3-35142

PATIENT

DRUGS (1)
  1. CIPROFLOXACIN + TINIDAZOLE [Suspect]
     Indication: PRODUCT USED FOR UNKNOWN INDICATION
     Dosage: UNK
     Route: 048

REACTIONS (4)
  - CIRCUMORAL OEDEMA [None]
  - DERMATITIS ALLERGIC [None]
  - LIP OEDEMA [None]
  - RASH PAPULAR [None]
